FAERS Safety Report 4309637-1 (Version None)
Quarter: 2004Q1

REPORT INFORMATION
  Report Type: 
  Country: None (occurrence: None)
  Receive Date: 20040302
  Receipt Date: 20040220
  Transmission Date: 20041129
  Serious: Yes (Death)
  Sender: FDA-Public Use
  Company Number: US-JNJFOC-20040204996

PATIENT
  Age: 79 Year
  Sex: Female

DRUGS (8)
  1. REMICADE [Suspect]
     Indication: RHEUMATOID ARTHRITIS
     Dosage: INTRAVENOUS
     Route: 042
     Dates: start: 20001024, end: 20001024
  2. ADALAT [Concomitant]
  3. PREDNISONE [Concomitant]
  4. ZOCOR [Concomitant]
  5. EFFEXOR [Concomitant]
  6. FUROSEMIDE [Concomitant]
  7. ISOSORBIDE (ISOSORBIDE) [Concomitant]
  8. METHOTREXATE [Concomitant]

REACTIONS (1)
  - DEATH [None]
